FAERS Safety Report 8011200-6 (Version None)
Quarter: 2011Q4

REPORT INFORMATION
  Report Type: 
  Country: None (occurrence: None)
  Receive Date: 20111222
  Receipt Date: 20111207
  Transmission Date: 20120403
  Serious: Yes (Hospitalization)
  Sender: FDA-Public Use
  Company Number: CIP11003251

PATIENT
  Age: 59 Year
  Sex: Female

DRUGS (1)
  1. ACTONEL [Suspect]
     Dosage: UNKNOWN DOSE MONTHLY, ORAL, UNKNOWN DOSE MONTHLY, ORAL

REACTIONS (2)
  - PSYCHOTIC BEHAVIOUR [None]
  - MENTAL DISORDER [None]
